FAERS Safety Report 15442963 (Version 2)
Quarter: 2020Q3

REPORT INFORMATION
  Report Type: Report from Study
  Country: DE (occurrence: DE)
  Receive Date: 20180928
  Receipt Date: 20181005
  Transmission Date: 20201105
  Serious: Yes (Hospitalization, Other)
  Sender: FDA-Public Use
  Company Number: DE-JNJFOC-20180706456

PATIENT
  Age: 6 Decade
  Sex: Male
  Weight: 88 kg

DRUGS (3)
  1. TRABECTEDIN [Suspect]
     Active Substance: TRABECTEDIN
     Indication: SARCOMA METASTATIC
     Dosage: CYCLE 2
     Route: 042
     Dates: start: 20180822, end: 20180822
  2. TRABECTEDIN [Suspect]
     Active Substance: TRABECTEDIN
     Route: 042
  3. TRABECTEDIN [Suspect]
     Active Substance: TRABECTEDIN
     Indication: SARCOMA METASTATIC
     Dosage: CYCLE 1 DAY 1
     Route: 042
     Dates: start: 20180615, end: 20180615

REACTIONS (7)
  - Thrombocytopenia [Unknown]
  - Neutropenia [Unknown]
  - Leukopenia [Unknown]
  - Neutropenic sepsis [Recovered/Resolved with Sequelae]
  - Pain [Unknown]
  - Febrile neutropenia [Unknown]
  - Anaemia [Unknown]

NARRATIVE: CASE EVENT DATE: 20180701
